FAERS Safety Report 4988900-5 (Version None)
Quarter: 2006Q2

REPORT INFORMATION
  Report Type: 
  Country: None (occurrence: None)
  Receive Date: 20060426
  Receipt Date: 20060413
  Transmission Date: 20061013
  Serious: Yes (Hospitalization)
  Sender: FDA-Public Use
  Company Number: 224124

PATIENT
  Sex: Female

DRUGS (3)
  1. XOLAIR [Suspect]
     Indication: ASTHMA
     Dosage: 300 MG, 1/MONTH, SUBCUTANEOUS
     Route: 058
     Dates: start: 20050525
  2. EFFEXOR [Concomitant]
  3. HYDROCORTISONE [Concomitant]

REACTIONS (1)
  - MANIA [None]
